FAERS Safety Report 5220029-3 (Version None)
Quarter: 2007Q1

REPORT INFORMATION
  Report Type: 
  Country: None (occurrence: None)
  Receive Date: 20070124
  Receipt Date: 20070124
  Transmission Date: 20070707
  Serious: Yes (Other)
  Sender: FDA-Public Use
  Company Number: None

PATIENT
  Age: 75 Year
  Sex: Male
  Weight: 98.9 kg

DRUGS (12)
  1. LISINOPRIL [Suspect]
  2. SIMVASTATIN [Concomitant]
  3. CITALOPRAM HYDROBROMIDE [Concomitant]
  4. QUETIAPINE FUMARATE [Concomitant]
  5. COUMADIN [Concomitant]
  6. TERAZOSIN HCL [Concomitant]
  7. LORATADINE [Concomitant]
  8. LOSARTAN POTASSIUM [Concomitant]
  9. OMEPRAZOLE [Concomitant]
  10. ATENOLOL [Concomitant]
  11. .. [Concomitant]
  12. .. [Concomitant]

REACTIONS (1)
  - COUGH [None]
